FAERS Safety Report 7798034-2 (Version None)
Quarter: 2011Q4

REPORT INFORMATION
  Report Type: 
  Country: None (occurrence: None)
  Receive Date: 20111005
  Receipt Date: 20110928
  Transmission Date: 20120403
  Serious: Yes (Hospitalization)
  Sender: FDA-Public Use
  Company Number: US-B.I. PHARMACEUTICALS,INC./RIDGEFIELD-2011-BP-19935BP

PATIENT
  Sex: Male

DRUGS (3)
  1. ZANTAC [Concomitant]
     Dosage: 300 MG
  2. PRADAXA [Suspect]
     Indication: ATRIAL FIBRILLATION
     Dosage: 300 MG
     Dates: start: 20110810
  3. MICARDIS [Concomitant]
     Dosage: 80 MG

REACTIONS (2)
  - HAEMATOCHEZIA [None]
  - MELAENA [None]
